FAERS Safety Report 10345384 (Version 1)
Quarter: 2014Q3

REPORT INFORMATION
  Report Type: Spontaneous
  Country: IN (occurrence: None)
  Receive Date: 20140723
  Receipt Date: 20140723
  Transmission Date: 20150326
  Serious: Yes (Hospitalization)
  Sender: FDA-Public Use
  Company Number: UCM201407-000126

PATIENT
  Age: 42 Year
  Sex: Male

DRUGS (1)
  1. AMLODIPINE BESYLATE 5 MG TABLETS (AMLODIPINE) (AMLODIPINE) [Suspect]
     Active Substance: AMLODIPINE BESYLATE
     Indication: HYPERTENSION

REACTIONS (7)
  - Shock [None]
  - Continuous haemodiafiltration [None]
  - Intentional overdose [None]
  - Hyperlactacidaemia [None]
  - Anuria [None]
  - Metabolic acidosis [None]
  - Respiratory acidosis [None]
